FAERS Safety Report 9700650 (Version 1)
Quarter: 2013Q4

REPORT INFORMATION
  Report Type: Spontaneous
  Country: US (occurrence: US)
  Receive Date: 20131121
  Receipt Date: 20131121
  Transmission Date: 20140711
  Serious: Yes (Other)
  Sender: FDA-Public Use
  Company Number: US-ENDO PHARMACEUTICALS INC.-OPCR20130411

PATIENT
  Age: 45 Year
  Sex: Female

DRUGS (1)
  1. OPANA ER 20MG [Suspect]
     Indication: PAIN
     Route: 048

REACTIONS (4)
  - Fall [Unknown]
  - Neck injury [Unknown]
  - Hand fracture [Unknown]
  - Intervertebral disc injury [Unknown]
